FAERS Safety Report 15938249 (Version 1)
Quarter: 2019Q1

REPORT INFORMATION
  Report Type: Spontaneous
  Country: US (occurrence: US)
  Receive Date: 20190208
  Receipt Date: 20190208
  Transmission Date: 20190417
  Serious: Yes (Disabling)
  Sender: FDA-Public Use
  Company Number: None

PATIENT
  Age: 70 Year
  Sex: Female
  Weight: 58.5 kg

DRUGS (4)
  1. METOPROLOL. [Concomitant]
     Active Substance: METOPROLOL
  2. ORENCIA [Concomitant]
     Active Substance: ABATACEPT
  3. MIRALAX [Concomitant]
     Active Substance: POLYETHYLENE GLYCOL 3350
  4. LEVOFLOXACIN INJECTION 750 [Suspect]
     Active Substance: LEVOFLOXACIN
     Indication: PNEUMONIA BACTERIAL
     Route: 042
     Dates: start: 20190103, end: 20190111

REACTIONS (4)
  - Tendon rupture [None]
  - Skin discolouration [None]
  - Pain in extremity [None]
  - Fall [None]

NARRATIVE: CASE EVENT DATE: 20190121
